FAERS Safety Report 11088027 (Version 1)
Quarter: 2015Q2

REPORT INFORMATION
  Report Type: Spontaneous
  Country: US (occurrence: None)
  Receive Date: 20150430
  Receipt Date: 20150430
  Transmission Date: 20150821
  Serious: Yes (Hospitalization)
  Sender: FDA-Public Use
  Company Number: 15AE020

PATIENT
  Age: 2 Year
  Sex: Male

DRUGS (1)
  1. EQUATE STOMACH RELIEF REGULAR STRENGTH [Suspect]
     Active Substance: BISMUTH SUBSALICYLATE

REACTIONS (1)
  - Accidental exposure to product by child [None]

NARRATIVE: CASE EVENT DATE: 20150403
